FAERS Safety Report 7656000-1 (Version None)
Quarter: 2011Q3

REPORT INFORMATION
  Report Type: 
  Country: None (occurrence: None)
  Receive Date: 20110804
  Receipt Date: 20110725
  Transmission Date: 20111222
  Serious: Yes (Hospitalization)
  Sender: FDA-Public Use
  Company Number: JP-JNJFOC-20110106341

PATIENT
  Sex: Female
  Weight: 35 kg

DRUGS (16)
  1. REMICADE [Suspect]
     Route: 042
  2. BREDININ [Suspect]
     Indication: RHEUMATOID ARTHRITIS
     Route: 048
     Dates: start: 20100224
  3. BREDININ [Suspect]
     Route: 048
     Dates: start: 20110715
  4. BLOSTAR M [Concomitant]
     Indication: GASTRITIS
     Route: 048
     Dates: start: 20101228
  5. REMICADE [Suspect]
     Dosage: 2ND DOSE
     Route: 042
     Dates: start: 20101225
  6. FAMOTIDINE [Concomitant]
     Indication: GASTRITIS
     Route: 048
     Dates: start: 20091228
  7. ISONIAZID [Concomitant]
     Indication: ANTIBIOTIC PROPHYLAXIS
     Route: 048
     Dates: start: 20101027
  8. REMICADE [Suspect]
     Indication: RHEUMATOID ARTHRITIS
     Route: 042
     Dates: start: 20110518
  9. METHOTREXATE [Suspect]
     Indication: RHEUMATOID ARTHRITIS
     Route: 048
     Dates: start: 19960101, end: 20101225
  10. METHOTREXATE [Suspect]
     Route: 048
  11. METHOTREXATE [Suspect]
     Route: 048
     Dates: start: 20101225
  12. METHOTREXATE [Suspect]
     Route: 048
     Dates: end: 20110701
  13. CLARITIN [Concomitant]
     Indication: RHINITIS ALLERGIC
     Route: 048
  14. FOLIC ACID [Concomitant]
     Indication: PROPHYLAXIS
     Route: 048
     Dates: start: 20100324
  15. REMICADE [Suspect]
     Route: 042
     Dates: start: 20101211
  16. FOLIC ACID [Concomitant]
     Indication: RHEUMATOID ARTHRITIS
     Route: 048
     Dates: start: 20100324

REACTIONS (5)
  - RIB FRACTURE [None]
  - DECREASED APPETITE [None]
  - BRONCHITIS [None]
  - HERPES ZOSTER [None]
  - PNEUMONIA [None]
